FAERS Safety Report 5280786-7 (Version None)
Quarter: 2007Q1

REPORT INFORMATION
  Report Type: 
  Country: None (occurrence: None)
  Receive Date: 20070329
  Receipt Date: 20070319
  Transmission Date: 20070707
  Serious: Yes (Other)
  Sender: FDA-Public Use
  Company Number: SE-PFIZER INC-2007016738

PATIENT
  Sex: Female

DRUGS (1)
  1. SUTENT [Suspect]
     Indication: METASTATIC RENAL CELL CARCINOMA
     Route: 048
     Dates: start: 20070216, end: 20070301

REACTIONS (6)
  - ANOREXIA [None]
  - DRY SKIN [None]
  - FATIGUE [None]
  - GINGIVITIS ULCERATIVE [None]
  - HAEMOGLOBIN INCREASED [None]
  - ORAL PAIN [None]
